FAERS Safety Report 23935573 (Version 1)
Quarter: 2024Q2

REPORT INFORMATION
  Report Type: Spontaneous
  Country: US (occurrence: US)
  Receive Date: 20240604
  Receipt Date: 20240604
  Transmission Date: 20240716
  Serious: Yes (Other)
  Sender: FDA-Public Use
  Company Number: US-TEVA-VS-3203838

PATIENT
  Sex: Female

DRUGS (14)
  1. PENICILLIN [Suspect]
     Active Substance: PENICILLIN
     Indication: Product used for unknown indication
     Route: 065
  2. ASPIRIN [Concomitant]
     Active Substance: ASPIRIN
  3. INSULIN LISPRO [Concomitant]
     Active Substance: INSULIN LISPRO
  4. TOPROL XL [Concomitant]
     Active Substance: METOPROLOL SUCCINATE
  5. VITAMIN D3 [Concomitant]
     Active Substance: CHOLECALCIFEROL
  6. GLUCOPHAGE [Concomitant]
     Active Substance: METFORMIN HYDROCHLORIDE
  7. RISPERDAL [Concomitant]
     Active Substance: RISPERIDONE
  8. BACTRIM DS [Concomitant]
     Active Substance: SULFAMETHOXAZOLE\TRIMETHOPRIM
  9. GLUCAGON [Concomitant]
     Active Substance: GLUCAGON\GLUCAGON HYDROCHLORIDE\WATER
  10. GLUCOTROL XL [Concomitant]
     Active Substance: GLIPIZIDE
  11. PRINIVIL [Concomitant]
     Active Substance: LISINOPRIL
  12. NORVASC [Concomitant]
     Active Substance: AMLODIPINE BESYLATE
  13. DEXTROSE [Concomitant]
     Active Substance: DEXTROSE\DEXTROSE MONOHYDRATE
  14. DELTASONE [Concomitant]
     Active Substance: PREDNISONE

REACTIONS (1)
  - Anaphylactic reaction [Unknown]
